FAERS Safety Report 8078675-8 (Version None)
Quarter: 2012Q1

REPORT INFORMATION
  Report Type: 
  Country: None (occurrence: None)
  Receive Date: 20120124
  Receipt Date: 20120111
  Transmission Date: 20120608
  Serious: Yes (Death)
  Sender: FDA-Public Use
  Company Number: JP-2012-10216

PATIENT

DRUGS (1)
  1. PLETAL [Suspect]

REACTIONS (1)
  - PULMONARY HAEMORRHAGE [None]
